FAERS Safety Report 6088443-4 (Version None)
Quarter: 2009Q1

REPORT INFORMATION
  Report Type: 
  Country: None (occurrence: None)
  Receive Date: 20090224
  Receipt Date: 20090211
  Transmission Date: 20090719
  Serious: Yes (Disabling)
  Sender: FDA-Public Use
  Company Number: GB-PFIZER INC-2009170394

PATIENT

DRUGS (3)
  1. CHAMPIX [Suspect]
     Indication: SMOKING CESSATION THERAPY
     Dosage: 1 MG, 2X/DAY
     Route: 048
     Dates: start: 20090115, end: 20090124
  2. QVAR 40 [Concomitant]
     Dosage: UNK
     Route: 055
  3. SALBUTAMOL [Concomitant]
     Dosage: UNK
     Route: 055

REACTIONS (1)
  - HAEMORRHAGE [None]
